FAERS Safety Report 4362992-9 (Version None)
Quarter: 2004Q2

REPORT INFORMATION
  Report Type: 
  Country: None (occurrence: None)
  Receive Date: 20040518
  Receipt Date: 20040505
  Transmission Date: 20050107
  Serious: No
  Sender: FDA-Public Use
  Company Number: 04P-008-0259791-00

PATIENT
  Age: 39 Year
  Sex: Male

DRUGS (4)
  1. EPILIM (SODIUM VALPROATE) (SODIUM VALPROATE) (SODIUM VALPROATE)  (SODI [Suspect]
     Indication: DROP ATTACKS
     Dosage: 600 MG, 1 IN 1 D
  2. EPILIM (SODIUM VALPROATE) (SODIUM VALPROATE) (SODIUM VALPROATE)  (SODI [Suspect]
     Indication: PETIT MAL EPILEPSY
     Dosage: 600 MG, 1 IN 1 D
  3. LAMOTRIGINE [Suspect]
     Indication: DROP ATTACKS
     Dosage: 500 MG, 2 IN 1 D
  4. LAMOTRIGINE [Suspect]
     Indication: PETIT MAL EPILEPSY
     Dosage: 500 MG, 2 IN 1 D

REACTIONS (4)
  - CONDITION AGGRAVATED [None]
  - DROP ATTACKS [None]
  - DRUG INEFFECTIVE [None]
  - PETIT MAL EPILEPSY [None]
